FAERS Safety Report 22040631 (Version 9)
Quarter: 2025Q4

REPORT INFORMATION
  Report Type: Spontaneous
  Country: JP (occurrence: JP)
  Receive Date: 20230227
  Receipt Date: 20251124
  Transmission Date: 20260117
  Serious: Yes (Hospitalization, Other)
  Sender: PFIZER
  Company Number: JP-PFIZER INC-PV202300022437

PATIENT
  Age: 56 Year
  Sex: Male
  Weight: 76.2 kg

DRUGS (27)
  1. PAXLOVID [Interacting]
     Active Substance: NIRMATRELVIR\RITONAVIR
     Indication: COVID-19 treatment
     Dosage: [NIRMATRELVIR 150 MG]/[RITONAVIR 100 MG]; 2X/DAY
     Route: 048
     Dates: start: 20220911, end: 20220915
  2. TACROLIMUS [Interacting]
     Active Substance: TACROLIMUS
     Indication: Prophylaxis against transplant rejection
     Dosage: 2.5 MG, 1X/DAY
     Route: 048
     Dates: end: 20220916
  3. TACROLIMUS [Interacting]
     Active Substance: TACROLIMUS
     Indication: Immunosuppressant drug therapy
     Dosage: 1.5 MG, 1X/DAY
     Route: 048
     Dates: start: 20220923
  4. METHYLPREDNISOLONE [Concomitant]
     Active Substance: METHYLPREDNISOLONE
     Indication: Renal transplant
     Dosage: 4 MG, 1X/DAY
     Route: 048
  5. METHYLPREDNISOLONE [Concomitant]
     Active Substance: METHYLPREDNISOLONE
     Indication: Immunosuppressant drug therapy
  6. MYCOPHENOLIC ACID [Concomitant]
     Active Substance: MYCOPHENOLIC ACID
     Indication: Renal transplant
     Dosage: MORNING: 750MG, EVENING: 500MG(1250MG/DAY)
     Route: 048
  7. MYCOPHENOLIC ACID [Concomitant]
     Active Substance: MYCOPHENOLIC ACID
     Dosage: 750 MG AFTER BREAKFAST, 250 MG AFTER DINNER, TWICE DAILY
  8. MYCOPHENOLIC ACID [Concomitant]
     Active Substance: MYCOPHENOLIC ACID
     Indication: Immunosuppressant drug therapy
     Dosage: 750 MG IN THE MORNING AND 500 MG IN THE EVENING
  9. AMLODIPINE [Concomitant]
     Active Substance: AMLODIPINE BESYLATE
     Dosage: 10 MG, 1X/DAY
  10. NIFEDIPINE [Concomitant]
     Active Substance: NIFEDIPINE
     Dosage: 20 MG, 2X/DAY
  11. CILNIDIPINE [Concomitant]
     Active Substance: CILNIDIPINE
     Dosage: 20 MG, 1X/DAY
  12. CARVEDILOL [Concomitant]
     Active Substance: CARVEDILOL
     Dosage: 10 MG, 1X/DAY
  13. FEXOFENADINE [Concomitant]
     Active Substance: FEXOFENADINE HYDROCHLORIDE
     Dosage: 60 MG, 2X/DAY
  14. AZILSARTAN KAMEDOXOMIL [Concomitant]
     Active Substance: AZILSARTAN KAMEDOXOMIL
     Dosage: 20 MG, 1X/DAY
  15. DOXAZOSIN [Concomitant]
     Active Substance: DOXAZOSIN MESYLATE
     Dosage: 4 MG, 1X/DAY
  16. ASPIRIN [Concomitant]
     Active Substance: ASPIRIN
     Dosage: 100 MG, 1X/DAY
  17. ROSUVASTATIN [Concomitant]
     Active Substance: ROSUVASTATIN
     Dosage: 2.5 MG, 1X/DAY
  18. FEBUXOSTAT [Concomitant]
     Active Substance: FEBUXOSTAT
     Dosage: 10 MG, 1X/DAY
  19. METFORMIN [Concomitant]
     Active Substance: METFORMIN HYDROCHLORIDE
     Dosage: 500 MG AFTER BREAKFAST, 250 MG AFTER DINNER, TWICE DAILY
  20. EMPAGLIFLOZIN [Concomitant]
     Active Substance: EMPAGLIFLOZIN
     Dosage: 10 MG, 1X/DAY
  21. LIRAGLUTIDE [Concomitant]
     Active Substance: LIRAGLUTIDE
     Dosage: 1.2 MG, 1X/DAY
  22. INSULIN GLARGINE [Concomitant]
     Active Substance: INSULIN GLARGINE
     Dosage: 16 UNITS BEFORE BED, ONCE DAILY
  23. INSULIN LISPRO [Concomitant]
     Active Substance: INSULIN LISPRO
     Dosage: 11 UNITS IN THE MORNING, 7 UNITS IN THE AFTERNOON, AND 11 UNITS IN THE EVENING
  24. RABEPRAZOLE [Concomitant]
     Active Substance: RABEPRAZOLE
     Dosage: 10 MG, 1X/DAY
  25. ALFACALCIDOL [Concomitant]
     Active Substance: ALFACALCIDOL
     Dosage: 0.25 UG, 1X/DAY
  26. MAGNESIUM OXIDE [Concomitant]
     Active Substance: MAGNESIUM OXIDE
     Dosage: 330 MG, 3X/DAY
  27. LINACLOTIDE [Concomitant]
     Active Substance: LINACLOTIDE
     Dosage: 0.25 MG, 1X/DAY

REACTIONS (9)
  - Labelled drug-drug interaction medication error [Recovered/Resolved]
  - Immunosuppressant drug level increased [Recovered/Resolved]
  - Ileus paralytic [Recovered/Resolved]
  - Acute kidney injury [Recovering/Resolving]
  - Hyperkalaemia [Recovered/Resolved]
  - Drug interaction [Recovered/Resolved]
  - Renal impairment [Recovering/Resolving]
  - Dehydration [Unknown]
  - Off label use [Unknown]

NARRATIVE: CASE EVENT DATE: 20220101
